FAERS Safety Report 20437784 (Version 1)
Quarter: 2022Q1

REPORT INFORMATION
  Report Type: Spontaneous
  Country: US (occurrence: None)
  Receive Date: 20220207
  Receipt Date: 20220207
  Transmission Date: 20220423
  Serious: Yes (Other)
  Sender: FDA-Public Use
  Company Number: US-ROCHE-3013375

PATIENT
  Sex: Male

DRUGS (1)
  1. ESBRIET [Suspect]
     Active Substance: PIRFENIDONE
     Indication: Idiopathic pulmonary fibrosis
     Dosage: 801MG EVERY THREE TIMES DAILY ORALLY
     Route: 048
     Dates: start: 20210928

REACTIONS (3)
  - Ascites [Unknown]
  - Decreased appetite [Unknown]
  - Diarrhoea [Unknown]
